FAERS Safety Report 4928686-3 (Version None)
Quarter: 2006Q1

REPORT INFORMATION
  Report Type: 
  Country: None (occurrence: None)
  Receive Date: 20060301
  Receipt Date: 20060220
  Transmission Date: 20060701
  Serious: Yes (Other)
  Sender: FDA-Public Use
  Company Number: TR-ABBOTT-06P-161-0325549-00

PATIENT
  Age: 17 Year
  Sex: Female

DRUGS (2)
  1. DEPAKENE [Suspect]
     Indication: ANXIETY
  2. DEPAKENE [Suspect]
     Indication: DEPRESSION

REACTIONS (1)
  - CENTRAL NERVOUS SYSTEM LESION [None]
